FAERS Safety Report 9174279 (Version 3)
Quarter: 2013Q4

REPORT INFORMATION
  Report Type: Spontaneous
  Country: US (occurrence: US)
  Receive Date: 20130320
  Receipt Date: 20131028
  Transmission Date: 20140711
  Serious: Yes (Other)
  Sender: FDA-Public Use
  Company Number: US-PFIZER INC-2013088441

PATIENT
  Sex: Female

DRUGS (2)
  1. NORVASC [Suspect]
     Dosage: 10 MG, UNK
     Dates: start: 1970
  2. ACCUPRIL [Concomitant]
     Dosage: UNK

REACTIONS (6)
  - Dementia Alzheimer^s type [Unknown]
  - Road traffic accident [Unknown]
  - Swelling [Unknown]
  - Joint swelling [Unknown]
  - Local swelling [Unknown]
  - Fluid retention [Unknown]
